FAERS Safety Report 13229662 (Version 1)
Quarter: 2017Q1

REPORT INFORMATION
  Report Type: Spontaneous
  Country: US (occurrence: US)
  Receive Date: 20170213
  Receipt Date: 20170213
  Transmission Date: 20170428
  Serious: Yes (Death, Hospitalization)
  Sender: FDA-Public Use
  Company Number: None

PATIENT
  Age: 62 Year
  Sex: Male

DRUGS (1)
  1. AFINITOR [Suspect]
     Active Substance: EVEROLIMUS
     Indication: RENAL CELL CARCINOMA
     Route: 048
     Dates: start: 20161208, end: 20170207

REACTIONS (5)
  - Nausea [None]
  - Decreased appetite [None]
  - Dizziness [None]
  - Epistaxis [None]
  - Anaemia [None]

NARRATIVE: CASE EVENT DATE: 20170207
